FAERS Safety Report 7555750-5 (Version None)
Quarter: 2011Q2

REPORT INFORMATION
  Report Type: 
  Country: None (occurrence: None)
  Receive Date: 20110617
  Receipt Date: 20110608
  Transmission Date: 20111010
  Serious: No
  Sender: FDA-Public Use
  Company Number: GB-B.I. PHARMACEUTICALS,INC./RIDGEFIELD-2011-UK-00258UK

PATIENT
  Sex: Male
  Weight: 72 kg

DRUGS (4)
  1. FLOMAX [Suspect]
     Indication: BENIGN PROSTATIC HYPERPLASIA
     Dosage: 1 ANZ
     Dates: start: 20100507, end: 20100514
  2. ASPIRIN [Concomitant]
     Indication: MYOCARDIAL ISCHAEMIA
     Dosage: 75 UNITS UNSPECIFIED
     Route: 048
     Dates: start: 20091112
  3. SIMVASTATIN [Concomitant]
     Indication: MYOCARDIAL ISCHAEMIA
     Dosage: 20 UNITS  UNSPECIFIED
     Route: 048
     Dates: start: 20091112
  4. CINNARIZINE [Concomitant]
     Indication: MENIERE'S DISEASE
     Dosage: 15MGS 2 TID,PRN
     Route: 048
     Dates: start: 20091112

REACTIONS (4)
  - DRY MOUTH [None]
  - DIZZINESS [None]
  - HYPERHIDROSIS [None]
  - PAIN IN EXTREMITY [None]
